FAERS Safety Report 14561057 (Version 1)
Quarter: 2018Q1

REPORT INFORMATION
  Report Type: Report from Study
  Country: US (occurrence: US)
  Receive Date: 20180222
  Receipt Date: 20180222
  Transmission Date: 20180509
  Serious: Yes (Hospitalization, Other)
  Sender: FDA-Public Use
  Company Number: US-GILEAD-2018-0321942

PATIENT
  Age: 45 Year
  Sex: Female

DRUGS (1)
  1. AMBRISENTAN [Suspect]
     Active Substance: AMBRISENTAN
     Indication: PRODUCT USED FOR UNKNOWN INDICATION
     Dosage: 10 MG, UNK
     Route: 065
     Dates: start: 20100802

REACTIONS (5)
  - Lung disorder [Unknown]
  - Cardiac disorder [Unknown]
  - Product use issue [Unknown]
  - Oxygen saturation decreased [Unknown]
  - Sickle cell disease [Unknown]

NARRATIVE: CASE EVENT DATE: 201712
